FAERS Safety Report 26172559 (Version 1)
Quarter: 2025Q4

REPORT INFORMATION
  Report Type: Spontaneous
  Country: IN (occurrence: IN)
  Receive Date: 20251218
  Receipt Date: 20251218
  Transmission Date: 20260118
  Serious: Yes (Other)
  Sender: NOVARTIS
  Company Number: IN-002147023-NVSC2025IN190475

PATIENT
  Sex: Female

DRUGS (3)
  1. RIBOCICLIB [Suspect]
     Active Substance: RIBOCICLIB
     Indication: Breast cancer
     Dosage: 200 MG (3-0-0 X 21 DAYS)
     Route: 065
     Dates: start: 20241219
  2. RIBOCICLIB [Suspect]
     Active Substance: RIBOCICLIB
     Dosage: 2 DOSAGE FORM, QD (3 WEEKS 1 WEEK OFF)
     Route: 065
     Dates: start: 20250723
  3. RIBOCICLIB [Suspect]
     Active Substance: RIBOCICLIB
     Dosage: 400 MG, QD
     Route: 048

REACTIONS (1)
  - Hypertension [Unknown]
